FAERS Safety Report 5806325-7 (Version None)
Quarter: 2008Q3

REPORT INFORMATION
  Report Type: 
  Country: None (occurrence: None)
  Receive Date: 20080708
  Receipt Date: 20080626
  Transmission Date: 20090109
  Serious: Yes (Hospitalization)
  Sender: FDA-Public Use
  Company Number: 2008SP001472

PATIENT
  Age: 45 Year
  Sex: Male
  Weight: 65.77 kg

DRUGS (6)
  1. LUNESTA [Suspect]
     Indication: INSOMNIA
     Dosage: 3 MG; ORAL
     Route: 048
     Dates: start: 20060101, end: 20080317
  2. INSULIN [Concomitant]
  3. NOVOLOG [Concomitant]
  4. LANTUS [Concomitant]
  5. CRESTOR [Concomitant]
  6. VERAPAMIL [Concomitant]

REACTIONS (19)
  - ASTHENIA [None]
  - BLOOD GLUCOSE INCREASED [None]
  - CONSTIPATION [None]
  - DIABETIC NEPHROPATHY [None]
  - DIZZINESS [None]
  - DRUG INEFFECTIVE [None]
  - DYSPNOEA EXERTIONAL [None]
  - HYPERHIDROSIS [None]
  - HYPERKALAEMIA [None]
  - HYPERLIPIDAEMIA [None]
  - HYPERTENSION [None]
  - HYPONATRAEMIA [None]
  - HYPOTENSION [None]
  - NAUSEA [None]
  - PROTEIN URINE PRESENT [None]
  - RENAL FAILURE [None]
  - RENAL FAILURE CHRONIC [None]
  - SYNCOPE [None]
  - VOMITING [None]
